FAERS Safety Report 9459895 (Version 1)
Quarter: 2013Q3

REPORT INFORMATION
  Report Type: Spontaneous
  Country: US (occurrence: US)
  Receive Date: 20130815
  Receipt Date: 20130815
  Transmission Date: 20140515
  Serious: Yes (Hospitalization)
  Sender: FDA-Public Use
  Company Number: US-PFIZER INC-2013232051

PATIENT
  Age: 74 Year
  Sex: Female

DRUGS (2)
  1. GLIPIZIDE [Suspect]
     Dosage: 10 MG, 1X/DAY
  2. LEVEMIR [Suspect]
     Dosage: 20 IU, 1X/DAY (BEFORE BEDTIME)

REACTIONS (3)
  - Blood glucose increased [Unknown]
  - Pancreatitis [Unknown]
  - Inappropriate schedule of drug administration [Unknown]
